FAERS Safety Report 5534893-1 (Version None)
Quarter: 2007Q4

REPORT INFORMATION
  Report Type: 
  Country: None (occurrence: None)
  Receive Date: 20071205
  Receipt Date: 20071204
  Transmission Date: 20080405
  Serious: No
  Sender: FDA-Public Use
  Company Number: US-BOEHRINGER INGELHEIM PHARMACEUTICALS, INC.-2007-BP-25535BP

PATIENT
  Sex: Female
  Weight: 45 kg

DRUGS (6)
  1. SPIRIVA [Suspect]
     Indication: CHRONIC OBSTRUCTIVE PULMONARY DISEASE
     Route: 055
     Dates: start: 20070601, end: 20071101
  2. FLONASE [Concomitant]
  3. ATIVAN [Concomitant]
  4. ZESTRIL [Concomitant]
  5. COMBIVENT [Concomitant]
  6. ALBUTEROL [Concomitant]

REACTIONS (4)
  - DRY EYE [None]
  - OCULAR DISCOMFORT [None]
  - OCULAR HYPERAEMIA [None]
  - VISION BLURRED [None]
